FAERS Safety Report 5994481-X (Version None)
Quarter: 2008Q4

REPORT INFORMATION
  Report Type: 
  Country: None (occurrence: None)
  Receive Date: 20081212
  Receipt Date: 20080826
  Transmission Date: 20090506
  Serious: No
  Sender: FDA-Public Use
  Company Number: US-AMGEN-KDL304135

PATIENT
  Sex: Female

DRUGS (2)
  1. ENBREL [Suspect]
     Indication: RHEUMATOID ARTHRITIS
     Route: 058
  2. PLAQUENIL [Concomitant]
     Route: 048

REACTIONS (10)
  - BRONCHITIS [None]
  - DIZZINESS [None]
  - HAEMOPTYSIS [None]
  - HEADACHE [None]
  - PAIN [None]
  - PNEUMONIA [None]
  - RASH PAPULAR [None]
  - RESPIRATORY DISORDER [None]
  - SINUSITIS [None]
  - TREMOR [None]
